FAERS Safety Report 25069628 (Version 1)
Quarter: 2025Q1

REPORT INFORMATION
  Report Type: Spontaneous
  Country: CN (occurrence: CN)
  Receive Date: 20250312
  Receipt Date: 20250312
  Transmission Date: 20250408
  Serious: Yes (Other)
  Sender: PURDUE
  Company Number: CN-NAPPMUNDI-GBR-2025-0124006

PATIENT
  Age: 61 Year
  Sex: Female

DRUGS (2)
  1. OXYCODONE HYDROCHLORIDE [Suspect]
     Active Substance: OXYCODONE HYDROCHLORIDE
     Indication: Back pain
     Dosage: 20 MILLIGRAM, BID
     Route: 048
     Dates: start: 20250224, end: 20250226
  2. OXYCODONE HYDROCHLORIDE [Suspect]
     Active Substance: OXYCODONE HYDROCHLORIDE
     Dosage: 10 MILLIGRAM, Q12H
     Route: 048
     Dates: start: 20250227

REACTIONS (5)
  - Depressed level of consciousness [Recovered/Resolved]
  - Dizziness [Recovered/Resolved]
  - Somnolence [Recovered/Resolved]
  - Nausea [Recovered/Resolved]
  - Vomiting [Recovered/Resolved]

NARRATIVE: CASE EVENT DATE: 20250226
